FAERS Safety Report 14064357 (Version 1)
Quarter: 2017Q4

REPORT INFORMATION
  Report Type: Other
  Country: US (occurrence: US)
  Receive Date: 20171009
  Receipt Date: 20171009
  Transmission Date: 20180321
  Serious: Yes (Hospitalization)
  Sender: FDA-Public Use
  Company Number: US-ACTELION-A-CH2017-160258

PATIENT
  Age: 35 Year
  Sex: Female

DRUGS (2)
  1. EPOPROSTENOL SODIUM. [Suspect]
     Active Substance: EPOPROSTENOL SODIUM
     Indication: PULMONARY ARTERIAL HYPERTENSION
     Dosage: 5 NG/KG, PER MIN
     Route: 042
  2. EPOPROSTENOL SODIUM. [Suspect]
     Active Substance: EPOPROSTENOL SODIUM
     Dosage: 7 NG/KG, PER MIN
     Route: 042

REACTIONS (11)
  - Oxygen saturation decreased [Recovered/Resolved]
  - Blood pressure decreased [Recovered/Resolved]
  - Extracorporeal membrane oxygenation [Unknown]
  - Normal newborn [Unknown]
  - Heart rate increased [Recovered/Resolved]
  - Caesarean section [Unknown]
  - Arterial repair [Unknown]
  - Cardiogenic shock [Recovered/Resolved]
  - Circulatory collapse [Recovered/Resolved]
  - Central venous pressure increased [Recovered/Resolved]
  - Exposure during pregnancy [Unknown]
